FAERS Safety Report 6715957-3 (Version None)
Quarter: 2010Q2

REPORT INFORMATION
  Report Type: 
  Country: None (occurrence: None)
  Receive Date: 20100507
  Receipt Date: 20100427
  Transmission Date: 20101027
  Serious: Yes (Other)
  Sender: FDA-Public Use
  Company Number: US-ABBOTT-10P-163-0641211-00

PATIENT
  Sex: Female

DRUGS (2)
  1. LUPRON [Suspect]
     Indication: INFERTILITY
     Dates: start: 20081101, end: 20081101
  2. PRENATAL VITAMINS [Concomitant]
     Indication: DRUG USE FOR UNKNOWN INDICATION

REACTIONS (1)
  - CAESAREAN SECTION [None]
